FAERS Safety Report 22614267 (Version 1)
Quarter: 2023Q2

REPORT INFORMATION
  Report Type: Spontaneous
  Country: CA (occurrence: CA)
  Receive Date: 20230619
  Receipt Date: 20230619
  Transmission Date: 20230722
  Serious: Yes (Other)
  Sender: FDA-Public Use
  Company Number: CA-UCBSA-2023030362

PATIENT
  Age: 63 Year
  Sex: Male

DRUGS (6)
  1. LEVETIRACETAM [Suspect]
     Active Substance: LEVETIRACETAM
     Indication: Seizure
     Dosage: UNK
  2. VIMPAT [Suspect]
     Active Substance: LACOSAMIDE
     Indication: Seizure
     Dosage: UNK
  3. PHENOBARBITAL [Suspect]
     Active Substance: PHENOBARBITAL
     Indication: Seizure
  4. MIDAZOLAM [Suspect]
     Active Substance: MIDAZOLAM
     Indication: Seizure
  5. PROPOFOL [Suspect]
     Active Substance: PROPOFOL
     Indication: Seizure
  6. PHENYTOIN [Suspect]
     Active Substance: PHENYTOIN
     Indication: Seizure

REACTIONS (3)
  - Multiple-drug resistance [Unknown]
  - Partial seizures [Unknown]
  - Status epilepticus [Unknown]
